FAERS Safety Report 11653225 (Version 1)
Quarter: 2015Q4

REPORT INFORMATION
  Report Type: Spontaneous
  Country: CH (occurrence: CH)
  Receive Date: 20151022
  Receipt Date: 20151022
  Transmission Date: 20160304
  Serious: Yes (Hospitalization)
  Sender: FDA-Public Use
  Company Number: CH-INDIVIOR-INDV-084441-2015

PATIENT
  Age: 85 Year
  Sex: Female

DRUGS (3)
  1. OXYCONTIN [Suspect]
     Active Substance: OXYCODONE HYDROCHLORIDE
     Indication: BACK PAIN
     Dosage: 80 MG, ONE TIME DOSE
     Route: 048
     Dates: start: 20120908, end: 20120908
  2. TEMGESIC [Suspect]
     Active Substance: BUPRENORPHINE HYDROCHLORIDE
     Indication: BACK PAIN
     Dosage: UNK
     Route: 048
     Dates: start: 20130917, end: 20130918
  3. LEXOTANIL [Concomitant]
     Active Substance: BROMAZEPAM
     Indication: PANIC ATTACK
     Dosage: 1 DF DOSAGE FORM
     Route: 048
     Dates: start: 20120908, end: 20120908

REACTIONS (3)
  - Anxiety [Recovered/Resolved]
  - Aphasia [Recovered/Resolved]
  - Confusional state [Recovered/Resolved]

NARRATIVE: CASE EVENT DATE: 20130918
